FAERS Safety Report 4280412-X (Version None)
Quarter: 2004Q1

REPORT INFORMATION
  Report Type: 
  Country: None (occurrence: None)
  Receive Date: 20040126
  Receipt Date: 20040120
  Transmission Date: 20041129
  Serious: Yes (Other)
  Sender: FDA-Public Use
  Company Number: 2004195007US

PATIENT
  Sex: Female

DRUGS (1)
  1. DEPO-PROVERA [Suspect]

REACTIONS (5)
  - CSF TEST ABNORMAL [None]
  - HEADACHE [None]
  - OPTIC NERVE DISORDER [None]
  - PITUITARY TUMOUR [None]
  - VISION BLURRED [None]
